FAERS Safety Report 8914270 (Version 1)
Quarter: 2012Q4

REPORT INFORMATION
  Report Type: 
  Country: IN (occurrence: IN)
  Receive Date: 20121118
  Receipt Date: 20121118
  Transmission Date: 20130627
  Serious: Yes (Life-Threatening, Hospitalization)
  Sender: FDA-Public Use
  Company Number: IN-MYLANLABS-2012S1023108

PATIENT
  Age: 25 Year
  Sex: Female
  Weight: 35 kg

DRUGS (2)
  1. METHOTREXATE [Suspect]
     Indication: ECTOPIC PREGNANCY
     Dosage: 50mg on d1, 3, 5, 7
     Route: 030
  2. FOLINIC ACID [Concomitant]
     Indication: ECTOPIC PREGNANCY
     Dosage: 5mg on d2, 4, 6, 8
     Route: 030

REACTIONS (18)
  - Toxicity to various agents [Recovering/Resolving]
  - Pyrexia [Recovered/Resolved]
  - Vomiting [Unknown]
  - Mouth ulceration [Unknown]
  - Melaena [Unknown]
  - Conjunctival haemorrhage [Not Recovered/Not Resolved]
  - Pigmentation disorder [Not Recovered/Not Resolved]
  - Localised intraabdominal fluid collection [Recovered/Resolved]
  - Shock [Recovering/Resolving]
  - Pneumonitis [Recovering/Resolving]
  - Bone marrow failure [Recovering/Resolving]
  - Sepsis [Recovering/Resolving]
  - Klebsiella infection [Recovering/Resolving]
  - Acinetobacter infection [Recovering/Resolving]
  - Candidiasis [Recovering/Resolving]
  - Urinary tract infection [Recovering/Resolving]
  - Immunosuppression [Recovering/Resolving]
  - Medication error [Recovering/Resolving]
